FAERS Safety Report 19956327 (Version 3)
Quarter: 2022Q2

REPORT INFORMATION
  Report Type: Report from Study
  Country: DE (occurrence: DE)
  Receive Date: 20211014
  Receipt Date: 20220428
  Transmission Date: 20220721
  Serious: Yes (Hospitalization)
  Sender: FDA-Public Use
  Company Number: DE-ROCHE-2917689

PATIENT
  Age: 60 Year
  Sex: Male
  Weight: 95 kg

DRUGS (24)
  1. RITUXIMAB [Suspect]
     Active Substance: RITUXIMAB
     Indication: Relapsing multiple sclerosis
     Dosage: 1000 MG,  (EVERY 6 MONTHS)
     Route: 041
     Dates: start: 20200916
  2. OCRELIZUMAB [Suspect]
     Active Substance: OCRELIZUMAB
     Indication: Relapsing multiple sclerosis
     Dosage: 150 MG, WEEKLY (300 MG EVERY 2 WEEKS)
     Route: 042
     Dates: start: 20190226, end: 20190312
  3. OCRELIZUMAB [Suspect]
     Active Substance: OCRELIZUMAB
     Dosage: 600 MG, CYCLIC (EVERY 6 MONTHS)
     Route: 042
     Dates: start: 20190917, end: 20200310
  4. OCRELIZUMAB [Suspect]
     Active Substance: OCRELIZUMAB
     Dosage: FREQ:2 WK;
     Route: 042
     Dates: start: 20190226, end: 20190312
  5. METHYLPREDNISOLONE [Concomitant]
     Active Substance: METHYLPREDNISOLONE
     Indication: Multiple sclerosis relapse
     Dosage: 1000 MG, DAILY
     Route: 042
     Dates: start: 20200124, end: 20200128
  6. METHYLPREDNISOLONE [Concomitant]
     Active Substance: METHYLPREDNISOLONE
     Dosage: 1000 MG, DAILY
     Route: 042
     Dates: start: 20200914, end: 20200918
  7. METHYLPREDNISOLONE [Concomitant]
     Active Substance: METHYLPREDNISOLONE
     Dosage: 1000 MG, DAILY
     Route: 042
     Dates: start: 20210315, end: 20210319
  8. BISOPROLOL [Concomitant]
     Active Substance: BISOPROLOL
     Indication: Hypertension
     Dosage: 1 DF, 1X/DAY
     Route: 048
  9. ENOXAPARIN SODIUM [Concomitant]
     Active Substance: ENOXAPARIN SODIUM
     Indication: Thrombosis prophylaxis
     Dosage: 40 MG, DAILY
     Route: 058
     Dates: start: 20200124, end: 20200128
  10. ENOXAPARIN SODIUM [Concomitant]
     Active Substance: ENOXAPARIN SODIUM
     Dosage: 40 MG, DAILY
     Route: 058
     Dates: start: 20200914, end: 20200918
  11. ENOXAPARIN SODIUM [Concomitant]
     Active Substance: ENOXAPARIN SODIUM
     Dosage: 40 MG, DAILY
     Route: 058
     Dates: start: 20210315, end: 20210319
  12. GABAPENTIN [Concomitant]
     Active Substance: GABAPENTIN
     Indication: Muscle spasticity
     Dosage: 600 MG, 3X/DAY
     Route: 048
     Dates: start: 202001, end: 202101
  13. GABAPENTIN [Concomitant]
     Active Substance: GABAPENTIN
     Dosage: 700 MG, 3X/DAY
     Route: 048
     Dates: start: 202101
  14. GABAPENTIN [Concomitant]
     Active Substance: GABAPENTIN
     Dosage: FREQ:.33 D;
     Route: 048
     Dates: start: 202101
  15. GABAPENTIN [Concomitant]
     Active Substance: GABAPENTIN
     Dosage: FREQ:.33 D;
     Route: 048
     Dates: start: 202001, end: 202101
  16. PANTOPRAZOLE [Concomitant]
     Active Substance: PANTOPRAZOLE
     Indication: Prophylaxis
     Dosage: 40 MG, DAILY
     Route: 048
     Dates: start: 20200124, end: 20200128
  17. PANTOPRAZOLE [Concomitant]
     Active Substance: PANTOPRAZOLE
     Dosage: 40 MG, DAILY
     Route: 048
     Dates: start: 20200914, end: 20200918
  18. PANTOPRAZOLE [Concomitant]
     Active Substance: PANTOPRAZOLE
     Dosage: 40 MG, DAILY
     Route: 048
     Dates: start: 20210315, end: 20210319
  19. COMIRNATY [Concomitant]
     Active Substance: TOZINAMERAN
     Indication: COVID-19 immunisation
     Dosage: DOSE 1, SINGLE
     Route: 030
     Dates: start: 20210715, end: 20210715
  20. COMIRNATY [Concomitant]
     Active Substance: TOZINAMERAN
     Dosage: DOSE 2, SINGLE
     Route: 030
     Dates: start: 20210811, end: 20210811
  21. COMIRNATY [Concomitant]
     Active Substance: TOZINAMERAN
     Dosage: DOSE 3, SINGLE
     Route: 030
     Dates: start: 20211108, end: 20211108
  22. PFIZER-BIONTECH COVID-19 VACCINE [Concomitant]
     Active Substance: TOZINAMERAN
     Indication: Prophylaxis
     Dosage: 1 DF, 1X/DAY
     Route: 030
     Dates: start: 20210811, end: 20210811
  23. PFIZER-BIONTECH COVID-19 VACCINE [Concomitant]
     Active Substance: TOZINAMERAN
     Dosage: 1 DF, 1X/DAY
     Route: 030
     Dates: start: 20210715, end: 20210715
  24. PFIZER-BIONTECH COVID-19 VACCINE [Concomitant]
     Active Substance: TOZINAMERAN
     Route: 030
     Dates: start: 20211108, end: 20211108

REACTIONS (3)
  - Arthritis [Recovered/Resolved]
  - Arthralgia [Not Recovered/Not Resolved]
  - Off label use [Unknown]

NARRATIVE: CASE EVENT DATE: 20210301
